FAERS Safety Report 12790210 (Version 1)
Quarter: 2016Q3

REPORT INFORMATION
  Report Type: Spontaneous
  Country: CA (occurrence: CA)
  Receive Date: 20160928
  Receipt Date: 20160928
  Transmission Date: 20161109
  Serious: Yes (Hospitalization, Other)
  Sender: FDA-Public Use
  Company Number: CA-GILEAD-2016-0234841

PATIENT
  Age: 61 Year
  Sex: Male
  Weight: 94 kg

DRUGS (11)
  1. FUROSEMIDE. [Concomitant]
     Active Substance: FUROSEMIDE
  2. PERINDOPRIL [Concomitant]
     Active Substance: PERINDOPRIL
  3. MORPHINE [Concomitant]
     Active Substance: MORPHINE
  4. TRAZODONE [Concomitant]
     Active Substance: TRAZODONE HYDROCHLORIDE
  5. BISOPROLOL [Concomitant]
     Active Substance: BISOPROLOL
  6. HARVONI [Suspect]
     Active Substance: LEDIPASVIR\SOFOSBUVIR
     Indication: HEPATITIS C
     Dosage: 1 DF, QD
     Route: 048
  7. HUMALOG [Concomitant]
     Active Substance: INSULIN LISPRO
  8. TRADJENTA [Concomitant]
     Active Substance: LINAGLIPTIN
  9. LANTUS [Concomitant]
     Active Substance: INSULIN GLARGINE
  10. SYNTHROID [Concomitant]
     Active Substance: LEVOTHYROXINE SODIUM
  11. DOCUSATE [Concomitant]
     Active Substance: DOCUSATE

REACTIONS (1)
  - Renal failure [Unknown]
